FAERS Safety Report 6199179-3 (Version None)
Quarter: 2009Q2

REPORT INFORMATION
  Report Type: 
  Country: None (occurrence: None)
  Receive Date: 20090522
  Receipt Date: 20090403
  Transmission Date: 20091009
  Serious: No
  Sender: FDA-Public Use
  Company Number: A0777112A

PATIENT
  Age: 67 Year
  Sex: Female

DRUGS (4)
  1. VERAMYST [Suspect]
     Route: 045
     Dates: start: 20080101
  2. SYNTHROID [Concomitant]
  3. ESTRACE [Concomitant]
  4. ALLERGY MEDICATION [Concomitant]

REACTIONS (1)
  - NASAL ULCER [None]
